FAERS Safety Report 20976000 (Version 1)
Quarter: 2022Q2

REPORT INFORMATION
  Report Type: Spontaneous
  Country: SE (occurrence: SE)
  Receive Date: 20220617
  Receipt Date: 20220617
  Transmission Date: 20220721
  Serious: Yes (Other)
  Sender: FDA-Public Use
  Company Number: None

PATIENT
  Age: 59 Year
  Sex: Male
  Weight: 102 kg

DRUGS (11)
  1. CUBICIN [Suspect]
     Active Substance: DAPTOMYCIN
     Indication: Staphylococcal sepsis
     Dosage: DOSAGE:1050 MG/DAY
     Route: 042
     Dates: start: 20220517, end: 20220524
  2. RINGER ACETAT FRESENIUS KABI [Concomitant]
     Dosage: B05BB01
     Dates: start: 20220516
  3. LOPERAMIDE HYDROCHLORIDE [Concomitant]
     Active Substance: LOPERAMIDE HYDROCHLORIDE
     Dosage: 1(UNITS NOT REPORTED), PRN (AS NECESSARY) MAXIMUM 8/DAY
     Dates: start: 20220228
  4. ACETAMINOPHEN [Concomitant]
     Active Substance: ACETAMINOPHEN
     Dosage: 1X4(ONE TABLET FOUR TIMES DAILY)
  5. FRAGMIN (MED KONSERVERINGSMEDEL) [Concomitant]
     Dosage: 0.8 MILLILITER, QD
     Dates: start: 20220516
  6. COMBIVENT [Concomitant]
     Active Substance: ALBUTEROL SULFATE\IPRATROPIUM BROMIDE
     Dosage: 10 MILLILITER, QD(2,5MLX4(2.5 ML FOUR TIMES DAILY))
     Dates: start: 20220517
  7. TADALAFIL 1A FARMA [Concomitant]
     Dosage: 1(UNITS NOT REPORTED), PRN(AS NECESSARY) MAXIMUM 3/DAY
     Dates: start: 20220504
  8. PRIMPERAN [Concomitant]
     Active Substance: METOCLOPRAMIDE HYDROCHLORIDE
     Dosage: 1(UNITS NOT REPORTED), PRN (AS NECESSARY) MAXIMUM 3/DAY
     Dates: start: 20220218
  9. DESLORATADINE [Concomitant]
     Active Substance: DESLORATADINE
     Dosage: 1 (UNITS NOT REPORTED), PRN (AS NECESSARY) (1X1 VB(ONE TABLET DAILY AS NEEDED))
     Dates: start: 20220511
  10. ALBUTEROL SULFATE [Concomitant]
     Active Substance: ALBUTEROL SULFATE
     Dosage: 1 (UNITS NOT REPORTED), PRN (AS NECESSARY) (1-2X3-4(1-2 TABLETS 3-4 TIMES DAILY))
     Dates: start: 20220504
  11. PANTOPRAZOLE SODIUM [Concomitant]
     Active Substance: PANTOPRAZOLE SODIUM
     Dosage: 40 MG 1X1(40 MG ONCE DAILY)
     Route: 048
     Dates: start: 20220226

REACTIONS (1)
  - Toxic neuropathy [Recovered/Resolved]

NARRATIVE: CASE EVENT DATE: 20220523
